FAERS Safety Report 7350983-5 (Version None)
Quarter: 2011Q1

REPORT INFORMATION
  Report Type: 
  Country: None (occurrence: None)
  Receive Date: 20110314
  Receipt Date: 20110309
  Transmission Date: 20110831
  Serious: Yes (Hospitalization, Other)
  Sender: FDA-Public Use
  Company Number: US-PFIZER INC-2010140623

PATIENT
  Sex: Male
  Weight: 81.633 kg

DRUGS (7)
  1. FINASTERIDE [Concomitant]
     Indication: PROSTATIC DISORDER
     Dosage: 5 MG, 1X/DAY
  2. SUTENT [Suspect]
     Indication: METASTATIC RENAL CELL CARCINOMA
     Dosage: 50 MG, 1X/DAY, FOR 28 DAYS EVERY 42 DAYS
     Route: 048
     Dates: start: 20101026, end: 20101112
  3. SUTENT [Suspect]
     Dosage: 50 MG, 1X/DAY FOR 28 DAYS EVERY 42 DAYS
     Dates: start: 20110105, end: 20110205
  4. DOXAZOSIN [Concomitant]
     Dosage: UNK
  5. TAMSULOSIN [Concomitant]
     Dosage: 0.4 MG, UNK
  6. METOPROLOL [Concomitant]
     Dosage: 25 MG, 2X/DAY
  7. ACETYLSALICYLIC ACID [Concomitant]
     Dosage: UNK

REACTIONS (8)
  - GAIT DISTURBANCE [None]
  - MUSCULAR WEAKNESS [None]
  - PAIN [None]
  - ASTHENIA [None]
  - RENAL FAILURE [None]
  - CONFUSIONAL STATE [None]
  - TREMOR [None]
  - PENILE HAEMORRHAGE [None]
